FAERS Safety Report 10264183 (Version 1)
Quarter: 2014Q2

REPORT INFORMATION
  Report Type: Spontaneous
  Country: US (occurrence: None)
  Receive Date: 20140623
  Receipt Date: 20140623
  Transmission Date: 20141212
  Serious: Yes (Disabling)
  Sender: FDA-Public Use
  Company Number: None

PATIENT
  Age: 63 Year
  Sex: Female
  Weight: 93.44 kg

DRUGS (1)
  1. CRESTOR [Suspect]
     Indication: BLOOD CHOLESTEROL INCREASED
     Dates: start: 20111207, end: 20130530

REACTIONS (6)
  - Neuropathy peripheral [None]
  - Blood glucose increased [None]
  - Flushing [None]
  - Feeling hot [None]
  - Burning sensation [None]
  - Sensory loss [None]
